FAERS Safety Report 21754550 (Version 2)
Quarter: 2022Q4

REPORT INFORMATION
  Report Type: Report from Study
  Country: DE (occurrence: None)
  Receive Date: 20221220
  Receipt Date: 20221227
  Transmission Date: 20230112
  Serious: Yes (Hospitalization)
  Sender: FDA-Public Use
  Company Number: DE-ROCHE-3243241

PATIENT
  Age: 45 Year
  Sex: Female
  Weight: 47 kg

DRUGS (9)
  1. ATEZOLIZUMAB [Suspect]
     Active Substance: ATEZOLIZUMAB
     Indication: Cervix carcinoma
     Dosage: ON 02/NOV/2022, MOST RECENT DOSE OF ATEZOLIZUMAB PRIOR TO AE WAS ADMINISTERED.
     Route: 041
     Dates: start: 20210809
  2. BEVACIZUMAB [Suspect]
     Active Substance: BEVACIZUMAB
     Indication: Cervix carcinoma
     Dosage: ON 02/NOV/2022, MOST RECENT DOSE OF BEVACIZUMAB PRIOR TO AE WAS ADMINISTERED.
     Route: 042
     Dates: start: 20210809
  3. CISPLATIN [Suspect]
     Active Substance: CISPLATIN
     Indication: Cervix carcinoma
     Dosage: ON 23/NOV/2021, MOST RECENT DOSE OF CISPLATIN PRIOR TO AE WAS ADMINISTERED.
     Route: 042
     Dates: start: 20210810
  4. PACLITAXEL [Suspect]
     Active Substance: PACLITAXEL
     Indication: Cervix carcinoma
     Dosage: ON 23/NOV/2021, MOST RECENT DOSE OF PACLITAXEL PRIOR TO AE WAS ADMINISTERED.
     Route: 042
     Dates: start: 20210810
  5. METOPROLOL [Concomitant]
     Active Substance: METOPROLOL
     Route: 048
     Dates: start: 20211001
  6. EDOXABAN TOSYLATE [Concomitant]
     Active Substance: EDOXABAN TOSYLATE
     Indication: Thrombosis
     Route: 048
     Dates: start: 20211022
  7. FENTANYL [Concomitant]
     Active Substance: FENTANYL
     Indication: Pain
     Dates: start: 20221121
  8. BENSERAZIDE HYDROCHLORIDE [Concomitant]
     Active Substance: BENSERAZIDE HYDROCHLORIDE
     Indication: Seizure
     Route: 048
     Dates: start: 20220510
  9. LEVODOPA [Concomitant]
     Active Substance: LEVODOPA
     Indication: Seizure
     Route: 048
     Dates: start: 20220510

REACTIONS (2)
  - Abdominal lymphadenopathy [Recovered/Resolved]
  - Abdominal pain [Recovered/Resolved]

NARRATIVE: CASE EVENT DATE: 20221117
